FAERS Safety Report 17688538 (Version 2)
Quarter: 2020Q4

REPORT INFORMATION
  Report Type: Spontaneous
  Country: FR (occurrence: FR)
  Receive Date: 20200421
  Receipt Date: 20201224
  Transmission Date: 20210113
  Serious: Yes (Hospitalization, Other)
  Sender: FDA-Public Use
  Company Number: NVSC2020FR102295

PATIENT
  Age: 42 Year
  Sex: Female
  Weight: 59 kg

DRUGS (1)
  1. VOLTAREN [Suspect]
     Active Substance: DICLOFENAC SODIUM
     Indication: ARTHRALGIA
     Dosage: UNK
     Route: 048
     Dates: start: 20170409, end: 20170410

REACTIONS (2)
  - Cellulitis streptococcal [Recovered/Resolved]
  - Beta haemolytic streptococcal infection [Recovered/Resolved]

NARRATIVE: CASE EVENT DATE: 20170410
